FAERS Safety Report 4522583-3 (Version None)
Quarter: 2004Q4

REPORT INFORMATION
  Report Type: 
  Country: None (occurrence: None)
  Receive Date: 20041207
  Receipt Date: 20041119
  Transmission Date: 20050328
  Serious: No
  Sender: FDA-Public Use
  Company Number: GBS041116027

PATIENT
  Age: 30 Year
  Sex: Male
  Weight: 101 kg

DRUGS (1)
  1. OLANZAPINE [Suspect]
     Indication: SCHIZOPHRENIA
     Dosage: 7.5 MG/1 DAY
     Dates: end: 20041008

REACTIONS (3)
  - DRUG INEFFECTIVE [None]
  - PURPURA [None]
  - VASCULITIS [None]
